FAERS Safety Report 8545559-8 (Version None)
Quarter: 2012Q3

REPORT INFORMATION
  Report Type: 
  Country: None (occurrence: None)
  Receive Date: 20120727
  Receipt Date: 20111025
  Transmission Date: 20120928
  Serious: No
  Sender: FDA-Public Use
  Company Number: US-ASTRAZENECA-2011SE64486

PATIENT

DRUGS (1)
  1. SEROQUEL [Suspect]
     Dosage: 100 MG AND 300 MG AT THE SAME TIME
     Route: 048

REACTIONS (1)
  - BRONCHITIS [None]
